FAERS Safety Report 4302050-2 (Version None)
Quarter: 2004Q1

REPORT INFORMATION
  Report Type: 
  Country: None (occurrence: None)
  Receive Date: 20040220
  Receipt Date: 20040209
  Transmission Date: 20041129
  Serious: Yes (Hospitalization)
  Sender: FDA-Public Use
  Company Number: RENA-10596

PATIENT
  Age: 67 Year
  Sex: Male
  Weight: 59.6 kg

DRUGS (6)
  1. RENAGEL [Suspect]
     Indication: HYPERPHOSPHATAEMIA
     Dosage: 1.5 G QD PO
     Route: 048
     Dates: start: 20030919, end: 20030926
  2. LASIX [Concomitant]
  3. ROCALTROL [Concomitant]
  4. SELBEX [Concomitant]
  5. EPOGIN [Concomitant]
  6. PROTECADIN [Concomitant]

REACTIONS (5)
  - ABDOMINAL DISTENSION [None]
  - ADHESION [None]
  - CONSTIPATION [None]
  - ILEUS PARALYTIC [None]
  - SUBILEUS [None]
